FAERS Safety Report 7573406-X (Version None)
Quarter: 2011Q2

REPORT INFORMATION
  Report Type: 
  Country: None (occurrence: None)
  Receive Date: 20110627
  Receipt Date: 20110411
  Transmission Date: 20111010
  Serious: Yes (Other)
  Sender: FDA-Public Use
  Company Number: A0922470A

PATIENT
  Sex: Male

DRUGS (3)
  1. ATIVAN [Concomitant]
  2. LAMICTAL XR [Suspect]
     Indication: PARTIAL SEIZURES
     Dosage: 500MG UNKNOWN
  3. VALIUM [Concomitant]

REACTIONS (2)
  - DRUG LEVEL DECREASED [None]
  - CONVULSION [None]
